FAERS Safety Report 24298107 (Version 2)
Quarter: 2024Q3

REPORT INFORMATION
  Report Type: Report from Study
  Country: US (occurrence: US)
  Receive Date: 20240909
  Receipt Date: 20240925
  Transmission Date: 20241017
  Serious: Yes (Death, Hospitalization, Other)
  Sender: MERCK
  Company Number: US-009507513-2409USA001450

PATIENT
  Sex: Female
  Weight: 90 kg

DRUGS (30)
  1. SOTATERCEPT [Suspect]
     Active Substance: SOTATERCEPT
     Indication: Pulmonary arterial hypertension
     Dosage: 1.3 MILLILITER, Q3W. STRENGTH: 90 MG
     Route: 058
     Dates: start: 20240809, end: 20240809
  2. WINREVAIR [Suspect]
     Active Substance: SOTATERCEPT-CSRK
     Indication: Pulmonary arterial hypertension
     Dosage: UNK UNK, Q3W
     Route: 058
     Dates: start: 20240822, end: 20240822
  3. OMEPRAZOLE [Concomitant]
     Active Substance: OMEPRAZOLE
  4. MELATONIN [Concomitant]
     Active Substance: MELATONIN
  5. MAGNESIUM [Concomitant]
     Active Substance: MAGNESIUM
  6. GUAIFENESIN [Concomitant]
     Active Substance: GUAIFENESIN
  7. POTASSIUM [Concomitant]
     Active Substance: POTASSIUM
  8. ALBUTEROL SULFATE [Concomitant]
     Active Substance: ALBUTEROL SULFATE
  9. ELIQUIS [Concomitant]
     Active Substance: APIXABAN
  10. SUCRALFATE [Concomitant]
     Active Substance: SUCRALFATE
  11. CALCIUM\VITAMIN D [Concomitant]
     Active Substance: CALCIUM\VITAMIN D
  12. FLONASE ALLERGY RELIEF [Concomitant]
     Active Substance: FLUTICASONE PROPIONATE
  13. SILDENAFIL CITRATE [Concomitant]
     Active Substance: SILDENAFIL CITRATE
  14. METOPROLOL SUCCINATE [Concomitant]
     Active Substance: METOPROLOL SUCCINATE
  15. AMITRIPTYLINE HYDROCHLORIDE [Concomitant]
     Active Substance: AMITRIPTYLINE HYDROCHLORIDE
  16. CALCITRIOL [Concomitant]
     Active Substance: CALCITRIOL
  17. TRAMADOL HCL [Concomitant]
     Active Substance: TRAMADOL HYDROCHLORIDE
  18. DAPAGLIFLOZIN [Concomitant]
     Active Substance: DAPAGLIFLOZIN
  19. ATORVASTATIN CALCIUM [Concomitant]
     Active Substance: ATORVASTATIN CALCIUM
  20. OXYGEN [Concomitant]
     Active Substance: OXYGEN
  21. ACETAMINOPHEN [Concomitant]
     Active Substance: ACETAMINOPHEN
  22. TRAZODONE HCL [Concomitant]
     Active Substance: TRAZODONE HYDROCHLORIDE
  23. HYDROXYZINE HYDROCHLORIDE [Concomitant]
     Active Substance: HYDROXYZINE HYDROCHLORIDE
  24. CETIRIZINE HCL [Concomitant]
     Active Substance: CETIRIZINE HYDROCHLORIDE
  25. FUROSEMIDE [Concomitant]
     Active Substance: FUROSEMIDE
  26. ROPINIROLE HYDROCHLORIDE [Concomitant]
     Active Substance: ROPINIROLE HYDROCHLORIDE
  27. SPIRONOLACTONE AND HYDROCHLOROTHIAZIDE [Concomitant]
     Active Substance: HYDROCHLOROTHIAZIDE\SPIRONOLACTONE
  28. TORSEMIDE [Concomitant]
     Active Substance: TORSEMIDE
  29. FERROUS SULFATE [Concomitant]
     Active Substance: FERROUS SULFATE
  30. TYVASO [Concomitant]
     Active Substance: TREPROSTINIL

REACTIONS (6)
  - Haemoglobin decreased [Unknown]
  - Gastrointestinal haemorrhage [Unknown]
  - Acute respiratory failure [Fatal]
  - Lung disorder [Fatal]
  - Peritoneal disorder [Fatal]
  - Inappropriate schedule of product administration [Unknown]

NARRATIVE: CASE EVENT DATE: 20240101
